FAERS Safety Report 9830776 (Version 2)
Quarter: 2014Q1

REPORT INFORMATION
  Report Type: Other
  Country: GB (occurrence: GB)
  Receive Date: 20140120
  Receipt Date: 20140205
  Transmission Date: 20141002
  Serious: Yes (Other)
  Sender: FDA-Public Use
  Company Number: GB-PERRIGO-14GB000346

PATIENT
  Sex: Female

DRUGS (18)
  1. CETIRIZINE HYDROCHLORIDE 16208/0066 10 MG [Suspect]
     Indication: ANGIOEDEMA
     Dosage: UNK
     Route: 065
  2. CETIRIZINE HYDROCHLORIDE 16208/0066 10 MG [Suspect]
     Indication: URTICARIA CHRONIC
  3. LORATADINE 16028/0080 10 MG [Suspect]
     Indication: ANGIOEDEMA
     Dosage: UNK
     Route: 065
  4. LORATADINE 16028/0080 10 MG [Suspect]
     Indication: URTICARIA CHRONIC
  5. CICLOSPORIN [Suspect]
     Indication: ANGIOEDEMA
     Dosage: 2.5 MG/KG, UNK
     Route: 065
  6. CICLOSPORIN [Suspect]
     Indication: URTICARIA CHRONIC
  7. DAPSONE [Suspect]
     Indication: ANGIOEDEMA
     Dosage: 50 MG, BID
     Route: 065
  8. DAPSONE [Suspect]
     Indication: URTICARIA CHRONIC
  9. FEXOFENADINE [Suspect]
     Indication: ANGIOEDEMA
     Dosage: UNK
     Route: 065
  10. FEXOFENADINE [Suspect]
     Indication: URTICARIA CHRONIC
  11. HYDROXYCHLOROQUINE [Suspect]
     Indication: ANGIOEDEMA
     Dosage: 400 MG, UNK
     Route: 065
  12. HYDROXYCHLOROQUINE [Suspect]
     Indication: URTICARIA CHRONIC
     Dosage: 200 MG, UNK
     Route: 065
  13. HYDROXYZINE [Suspect]
     Indication: ANGIOEDEMA
     Dosage: UNK
     Route: 065
  14. HYDROXYZINE [Suspect]
     Indication: URTICARIA CHRONIC
  15. METHOTREXATE [Suspect]
     Indication: ANGIOEDEMA
     Dosage: UNK
     Route: 065
  16. METHOTREXATE [Suspect]
     Indication: URTICARIA CHRONIC
  17. PREDNISOLONE [Suspect]
     Indication: ANGIOEDEMA
     Dosage: 40 MG, UNK
     Route: 065
  18. PREDNISOLONE [Suspect]
     Indication: URTICARIA CHRONIC

REACTIONS (6)
  - Angioedema [Unknown]
  - Asthma [Unknown]
  - Blood pressure increased [Unknown]
  - Urticaria [Unknown]
  - Drug effect incomplete [Unknown]
  - Drug ineffective [Unknown]
